FAERS Safety Report 20090383 (Version 3)
Quarter: 2022Q1

REPORT INFORMATION
  Report Type: Spontaneous
  Country: US (occurrence: US)
  Receive Date: 20211119
  Receipt Date: 20220107
  Transmission Date: 20220423
  Serious: No
  Sender: FDA-Public Use
  Company Number: US-PFIZER INC-202101441165

PATIENT
  Age: 68 Year
  Sex: Female
  Weight: 103.42 kg

DRUGS (1)
  1. ESTRING [Suspect]
     Active Substance: ESTRADIOL
     Indication: Atrophic vulvovaginitis
     Dosage: 2 MG, EVERY 3 MONTHS

REACTIONS (2)
  - Weight increased [Unknown]
  - Wrong technique in product usage process [Not Recovered/Not Resolved]
